FAERS Safety Report 17766499 (Version 2)
Quarter: 2020Q2

REPORT INFORMATION
  Report Type: Report from Study
  Country: AU (occurrence: AU)
  Receive Date: 20200511
  Receipt Date: 20200521
  Transmission Date: 20200714
  Serious: Yes (Hospitalization)
  Sender: FDA-Public Use
  Company Number: AU-AMGEN-AUSCT2020073326

PATIENT
  Age: 62 Year
  Sex: Male

DRUGS (13)
  1. DENOSUMAB [Suspect]
     Active Substance: DENOSUMAB
     Indication: METASTATIC MALIGNANT MELANOMA
     Dosage: 120 UNK
     Route: 058
     Dates: start: 20200306
  2. IPILIMUMAB [Suspect]
     Active Substance: IPILIMUMAB
     Indication: METASTATIC MALIGNANT MELANOMA
     Dosage: 231 UNK
     Route: 042
     Dates: start: 20191111
  3. PANTOPRAZOLE [Concomitant]
     Active Substance: PANTOPRAZOLE
     Indication: PROPHYLAXIS
     Dosage: 40 MILLIGRAM
     Route: 048
     Dates: start: 20191227
  4. PARACETAMOL [Concomitant]
     Active Substance: ACETAMINOPHEN
     Indication: MUSCULOSKELETAL PAIN
     Dosage: 1 GRAM
     Route: 048
     Dates: start: 20191019
  5. LORATADINE. [Concomitant]
     Active Substance: LORATADINE
     Indication: DERMATITIS
     Dosage: 10 MILLIGRAM
     Route: 048
     Dates: start: 20191115
  6. TARGIN [Concomitant]
     Active Substance: NALOXONE HYDROCHLORIDE\OXYCODONE HYDROCHLORIDE
     Indication: MUSCULOSKELETAL PAIN
     Dosage: 5/2.5MG
     Route: 048
     Dates: start: 20191007
  7. CALCIUM PLUS VITAMIN D [Concomitant]
     Active Substance: CALCIUM\VITAMIN D
     Indication: SUPPLEMENTATION THERAPY
     Dosage: 600MG/500IU
     Route: 048
     Dates: start: 20191115
  8. ENDONE [Concomitant]
     Active Substance: OXYCODONE HYDROCHLORIDE
     Indication: MUSCULOSKELETAL PAIN
     Dosage: 5 MILLIGRAM
     Route: 048
     Dates: start: 20191007
  9. NIVOLUMAB [Suspect]
     Active Substance: NIVOLUMAB
     Indication: METASTATIC MALIGNANT MELANOMA
     Dosage: 480 UNK
     Route: 042
     Dates: start: 20191111
  10. ROSUVASTATIN. [Concomitant]
     Active Substance: ROSUVASTATIN
     Indication: HYPERLIPIDAEMIA
     Dosage: 10 MILLIGRAM
     Route: 048
     Dates: start: 2018
  11. COLOXYL WITH SENNA [Concomitant]
     Active Substance: DOCUSATE SODIUM\SENNOSIDES A AND B
     Indication: CONSTIPATION
     Dosage: 2 DOSAGE FORM
     Route: 048
     Dates: start: 20191007
  12. RIVAROXABAN [Concomitant]
     Active Substance: RIVAROXABAN
     Indication: PULMONARY EMBOLISM
     Dosage: 20 MILLIGRAM
     Route: 048
     Dates: start: 20200303
  13. LYRICA [Concomitant]
     Active Substance: PREGABALIN
     Indication: MUSCULOSKELETAL PAIN
     Dosage: 150 MILLIGRAM
     Route: 048
     Dates: start: 20191007

REACTIONS (1)
  - Pneumonitis [Recovered/Resolved]

NARRATIVE: CASE EVENT DATE: 20200426
